FAERS Safety Report 22621381 (Version 2)
Quarter: 2023Q2

REPORT INFORMATION
  Report Type: Report from Study
  Country: CA (occurrence: CA)
  Receive Date: 20230620
  Receipt Date: 20230630
  Transmission Date: 20230722
  Serious: Yes (Other)
  Sender: FDA-Public Use
  Company Number: CA-AKCEA THERAPEUTICS, INC.-2022IS003108

PATIENT

DRUGS (12)
  1. TEGSEDI [Suspect]
     Active Substance: INOTERSEN SODIUM
     Indication: Amyloidosis senile
     Dosage: 284 MILLIGRAM, QW
     Route: 058
     Dates: start: 20220929
  2. TEGSEDI [Suspect]
     Active Substance: INOTERSEN SODIUM
     Dosage: 284 MG, QW
     Route: 058
     Dates: start: 202211
  3. TEGSEDI [Suspect]
     Active Substance: INOTERSEN SODIUM
     Dosage: 284 MG, QW
     Route: 058
     Dates: start: 20220430
  4. TEGSEDI [Suspect]
     Active Substance: INOTERSEN SODIUM
     Dosage: 284 MILLIGRAM, QW
     Route: 058
     Dates: end: 202204
  5. TEGSEDI [Suspect]
     Active Substance: INOTERSEN SODIUM
     Dosage: 284 MG, QW
     Route: 058
     Dates: start: 20220310
  6. TEGSEDI [Suspect]
     Active Substance: INOTERSEN SODIUM
     Dosage: 284 MG, QW
     Route: 058
  7. TEGSEDI [Suspect]
     Active Substance: INOTERSEN SODIUM
     Dosage: 284 MG, QW
     Route: 058
     Dates: start: 20220119
  8. TEGSEDI [Suspect]
     Active Substance: INOTERSEN SODIUM
     Dosage: 284 MG, QW
     Route: 058
     Dates: start: 20220310
  9. LASIX [Suspect]
     Active Substance: FUROSEMIDE
     Indication: Product used for unknown indication
     Dosage: 40 MILLIGRAM
     Route: 065
  10. LASIX [Suspect]
     Active Substance: FUROSEMIDE
     Dosage: 60 MILLIGRAM
     Route: 065
  11. ROSUVASTATIN [Concomitant]
     Active Substance: ROSUVASTATIN
     Indication: Prostatomegaly
     Dosage: UNK, QD
     Route: 048
     Dates: start: 2017
  12. ELIQUIS [Concomitant]
     Active Substance: APIXABAN
     Indication: Anticoagulant therapy
     Dosage: 5 MG, BID
     Route: 048
     Dates: start: 202201

REACTIONS (42)
  - Renal impairment [Recovering/Resolving]
  - Glomerular filtration rate decreased [Unknown]
  - Dementia [Not Recovered/Not Resolved]
  - Malaise [Unknown]
  - Confusional state [Not Recovered/Not Resolved]
  - COVID-19 [Not Recovered/Not Resolved]
  - Device use error [Unknown]
  - Blood creatinine increased [Unknown]
  - Solar lentigo [Unknown]
  - Blood bilirubin abnormal [Unknown]
  - Bilirubin conjugated increased [Unknown]
  - Platelet morphology abnormal [Unknown]
  - Red blood cell morphology abnormal [Unknown]
  - Red blood cell burr cells present [Unknown]
  - Red blood cell elliptocytes present [Not Recovered/Not Resolved]
  - Red blood cell target cells present [Unknown]
  - Polychromasia [Unknown]
  - Anisocytosis [Unknown]
  - Fatigue [Not Recovered/Not Resolved]
  - Contusion [Not Recovered/Not Resolved]
  - Injection site pain [Not Recovered/Not Resolved]
  - Injection site erythema [Not Recovered/Not Resolved]
  - Injection site reaction [Not Recovered/Not Resolved]
  - Injection site swelling [Recovering/Resolving]
  - Injection site pruritus [Unknown]
  - Platelet count decreased [Not Recovered/Not Resolved]
  - Anxiety [Unknown]
  - Rash [Unknown]
  - Injection site mass [Unknown]
  - Blood bilirubin unconjugated increased [Not Recovered/Not Resolved]
  - Mobility decreased [Not Recovered/Not Resolved]
  - Fear [Not Recovered/Not Resolved]
  - Depression [Not Recovered/Not Resolved]
  - Blood bilirubin increased [Unknown]
  - Creatinine urine decreased [Recovered/Resolved]
  - Somnolence [Not Recovered/Not Resolved]
  - Intentional product misuse [Unknown]
  - Protein urine present [Unknown]
  - Peripheral swelling [Recovering/Resolving]
  - Haematocrit increased [Recovered/Resolved]
  - Urine protein/creatinine ratio increased [Unknown]
  - Red cell distribution width increased [Recovered/Resolved]

NARRATIVE: CASE EVENT DATE: 20220119
